FAERS Safety Report 8308337-0 (Version None)
Quarter: 2012Q2

REPORT INFORMATION
  Report Type: 
  Country: None (occurrence: None)
  Receive Date: 20120424
  Receipt Date: 20120404
  Transmission Date: 20120825
  Serious: No
  Sender: FDA-Public Use
  Company Number: US-JNJFOC-20120402615

PATIENT
  Sex: Male

DRUGS (1)
  1. INVEGA SUSTENNA [Suspect]
     Indication: PRODUCT USED FOR UNKNOWN INDICATION
     Route: 030
     Dates: start: 20120101

REACTIONS (6)
  - AGGRESSION [None]
  - ANTISOCIAL BEHAVIOUR [None]
  - FEAR [None]
  - STRESS [None]
  - WEIGHT INCREASED [None]
  - PRODUCT QUALITY ISSUE [None]
